FAERS Safety Report 6969240-1 (Version None)
Quarter: 2010Q3

REPORT INFORMATION
  Report Type: 
  Country: None (occurrence: None)
  Receive Date: 20100907
  Receipt Date: 20100826
  Transmission Date: 20110219
  Serious: Yes (Hospitalization)
  Sender: FDA-Public Use
  Company Number: US-WYE-H17196510

PATIENT
  Sex: Female

DRUGS (1)
  1. PRISTIQ [Suspect]
     Dosage: UNKNOWN DOSE, TEMPORARILY WITHDRAWN, AND THEN RESTARTED AT AN UNKNOWN DOSE

REACTIONS (3)
  - DRUG WITHDRAWAL SYNDROME [None]
  - MIGRAINE [None]
  - NONSPECIFIC REACTION [None]
